FAERS Safety Report 9772596 (Version 1)
Quarter: 2013Q4

REPORT INFORMATION
  Report Type: Spontaneous
  Country: US (occurrence: US)
  Receive Date: 20131219
  Receipt Date: 20131219
  Transmission Date: 20140711
  Serious: No
  Sender: FDA-Public Use
  Company Number: US-PFIZER INC-2013363065

PATIENT
  Age: 42 Year
  Sex: Female
  Weight: 83.9 kg

DRUGS (5)
  1. NEURONTIN [Suspect]
     Indication: NEUROPATHY PERIPHERAL
     Dosage: UNK
     Dates: start: 201302, end: 2013
  2. NEURONTIN [Suspect]
     Dosage: UP TO 2400MG, UNK
     Dates: start: 2013, end: 201308
  3. LYRICA [Suspect]
     Indication: CAUDA EQUINA SYNDROME
     Dosage: 100 MG, 2X/DAY
     Dates: start: 201308
  4. LAMICTAL [Concomitant]
     Indication: EPILEPSY
     Dosage: 100 MG, DAILY
  5. OXYCODONE [Concomitant]
     Indication: PAIN
     Dosage: 10 MG, 2X/DAY

REACTIONS (3)
  - Off label use [Unknown]
  - Amnesia [Unknown]
  - Drug ineffective [Unknown]
